FAERS Safety Report 24432964 (Version 1)
Quarter: 2024Q4

REPORT INFORMATION
  Report Type: Spontaneous
  Country: BA (occurrence: BA)
  Receive Date: 20241014
  Receipt Date: 20241014
  Transmission Date: 20250114
  Serious: Yes (Death)
  Sender: ROCHE
  Company Number: BA-ROCHE-10000100087

PATIENT
  Age: 71 Year
  Sex: Female
  Weight: 49 kg

DRUGS (2)
  1. TECENTRIQ [Suspect]
     Active Substance: ATEZOLIZUMAB
     Indication: Small cell lung cancer extensive stage
     Route: 042
  2. SULFAMETHOXAZOLE\TRIMETHOPRIM [Suspect]
     Active Substance: SULFAMETHOXAZOLE\TRIMETHOPRIM
     Indication: Blood disorder prophylaxis
     Dosage: 400/80?BOSNA LIJEK?2X2 DAILY
     Route: 048
     Dates: start: 20240801, end: 20240805

REACTIONS (2)
  - Stevens-Johnson syndrome [Fatal]
  - Toxic epidermal necrolysis [Fatal]

NARRATIVE: CASE EVENT DATE: 20240805
